FAERS Safety Report 19405828 (Version 1)
Quarter: 2021Q2

REPORT INFORMATION
  Report Type: Spontaneous
  Country: US (occurrence: US)
  Receive Date: 20210611
  Receipt Date: 20210611
  Transmission Date: 20210717
  Serious: No
  Sender: FDA-Public Use
  Company Number: US-OCULAR THERAPEUTIX-2021OCX00029

PATIENT
  Sex: Female

DRUGS (1)
  1. DEXTENZA [Suspect]
     Active Substance: DEXAMETHASONE
     Indication: CATARACT OPERATION
     Dosage: UNK UNK, ONCE
     Dates: start: 20210323

REACTIONS (3)
  - Dry eye [Unknown]
  - Eye disorder [Unknown]
  - Dacryostenosis acquired [Unknown]

NARRATIVE: CASE EVENT DATE: 202105
